FAERS Safety Report 24093138 (Version 1)
Quarter: 2024Q3

REPORT INFORMATION
  Report Type: Spontaneous
  Country: US (occurrence: US)
  Receive Date: 20240715
  Receipt Date: 20240715
  Transmission Date: 20241017
  Serious: Yes (Other)
  Sender: DR REDDYS
  Company Number: US-DRL-USA-LIT/USA/24/0010130

PATIENT
  Age: 58 Year
  Sex: Male

DRUGS (1)
  1. HEPARIN [Suspect]
     Active Substance: HEPARIN SODIUM
     Indication: Thrombosis prophylaxis
     Dosage: AT INITIAL DOSE OF 8 UNITS/KG/H. FURTHER THE DOSE WAS INCREASED TO 10 UNITS/KG/H
     Route: 042

REACTIONS (3)
  - Drug ineffective [Unknown]
  - Catheter site haemorrhage [Unknown]
  - Post procedural haemorrhage [Unknown]
